FAERS Safety Report 14433031 (Version 2)
Quarter: 2018Q1

REPORT INFORMATION
  Report Type: Spontaneous
  Country: FR (occurrence: FR)
  Receive Date: 20180124
  Receipt Date: 20180125
  Transmission Date: 20180509
  Serious: Yes (Other)
  Sender: FDA-Public Use
  Company Number: FR-CIPLA LTD.-2018FR01374

PATIENT

DRUGS (1)
  1. LAMOTRIGINE. [Suspect]
     Active Substance: LAMOTRIGINE
     Indication: EPILEPSY
     Dosage: UNK
     Route: 048
     Dates: start: 2001

REACTIONS (4)
  - Premature rupture of membranes [Not Recovered/Not Resolved]
  - Premature delivery [Not Recovered/Not Resolved]
  - Breech presentation [Not Recovered/Not Resolved]
  - Uterine hypertonus [Recovered/Resolved]

NARRATIVE: CASE EVENT DATE: 20170610
